FAERS Safety Report 4452239-7 (Version None)
Quarter: 2004Q3

REPORT INFORMATION
  Report Type: 
  Country: None (occurrence: None)
  Receive Date: 20040917
  Receipt Date: 20040910
  Transmission Date: 20050211
  Serious: Yes (Hospitalization)
  Sender: FDA-Public Use
  Company Number: JP-MERCK-0409USA01017

PATIENT
  Age: 83 Year
  Sex: Female

DRUGS (5)
  1. ALFAROL [Concomitant]
     Route: 048
  2. NORVASC [Concomitant]
     Route: 048
  3. BLOCKLIN L [Concomitant]
     Route: 048
  4. PARIET [Concomitant]
     Route: 048
  5. ZOCOR [Suspect]
     Indication: HYPERLIPIDAEMIA
     Route: 048
     Dates: start: 20031201, end: 20040225

REACTIONS (3)
  - MUSCLE CRAMP [None]
  - NECK PAIN [None]
  - PAIN [None]
